FAERS Safety Report 4947034-6 (Version None)
Quarter: 2006Q1

REPORT INFORMATION
  Report Type: 
  Country: None (occurrence: None)
  Receive Date: 20060313
  Receipt Date: 20060223
  Transmission Date: 20060701
  Serious: No
  Sender: FDA-Public Use
  Company Number: TRP_0718_2006

PATIENT
  Age: 42 Year
  Sex: Female

DRUGS (2)
  1. RIBASPHERE [Suspect]
     Indication: HEPATITIS C
     Dosage: DF UNK PO
     Route: 048
     Dates: start: 20051230
  2. PEG-INTRON [Suspect]
     Indication: HEPATITIS C
     Dosage: DF UNK SC
     Route: 058
     Dates: start: 20051230

REACTIONS (11)
  - AFFECT LABILITY [None]
  - BACK PAIN [None]
  - EYE IRRITATION [None]
  - FATIGUE [None]
  - GINGIVITIS [None]
  - INFLUENZA [None]
  - INSOMNIA [None]
  - PNEUMONIA [None]
  - RASH [None]
  - WEIGHT DECREASED [None]
  - WHITE BLOOD CELL COUNT DECREASED [None]
